FAERS Safety Report 13129766 (Version 3)
Quarter: 2017Q1

REPORT INFORMATION
  Report Type: Spontaneous
  Country: US (occurrence: US)
  Receive Date: 20170119
  Receipt Date: 20170228
  Transmission Date: 20170428
  Serious: Yes (Other)
  Sender: FDA-Public Use
  Company Number: US-PFIZER INC-2017022072

PATIENT
  Age: 68 Year
  Sex: Female
  Weight: 53.61 kg

DRUGS (14)
  1. IBRANCE [Suspect]
     Active Substance: PALBOCICLIB
     Indication: BREAST CANCER METASTATIC
     Dosage: 125 MG, CYCLIC (DAILY X 3WEEKS EVERY 28 DAYS)
     Route: 048
     Dates: start: 20161018
  2. OFLOXACIN. [Concomitant]
     Active Substance: OFLOXACIN
     Dosage: 3 GTT, 2X/DAY(3 DROPS INTO AFFECTED EAR) (OTIC SOLUTION)
     Dates: start: 20160128
  3. FASLODEX [Suspect]
     Active Substance: FULVESTRANT
     Indication: BREAST CANCER METASTATIC
     Dosage: 500 MG, CYCLIC (EVERY TWO WEEKS FOR THREE DOSES AND THEN MONTHLY)
     Route: 030
     Dates: start: 20161018
  4. TRAMADOL HCL [Concomitant]
     Active Substance: TRAMADOL HYDROCHLORIDE
     Indication: PAIN MANAGEMENT
     Dosage: 50 MG, AS NEEDED (1 TABLET DAILY)
     Route: 048
     Dates: start: 20160719
  5. ONDANSETRON HCL [Concomitant]
     Active Substance: ONDANSETRON HYDROCHLORIDE
     Dosage: 8 MG, AS NEEDED (THREE TIMES PER DAY)
     Route: 048
     Dates: start: 20150518
  6. AMITRIPTYLINE HCL [Concomitant]
     Active Substance: AMITRIPTYLINE
     Dosage: 25 MG, 1X/DAY (AT BEDTIME)
     Route: 048
     Dates: start: 20150511
  7. VIT B 12 [Concomitant]
     Dosage: 1000 UG, UNK
     Route: 048
     Dates: start: 20150511
  8. CRESTOR [Concomitant]
     Active Substance: ROSUVASTATIN CALCIUM
     Dosage: 10 MG, 1X/DAY (TAKE 1 TABLET AT BEDTIME)
     Route: 048
     Dates: start: 20150511
  9. ASPIRIN. [Concomitant]
     Active Substance: ASPIRIN
     Dosage: 81 MG, DAILY (1 TABLET DAILY AS DIRECTED)
     Route: 048
     Dates: start: 20151203
  10. XGEVA [Concomitant]
     Active Substance: DENOSUMAB
     Indication: METASTASES TO BONE
     Dosage: UNK UNK, MONTHLY
     Route: 058
  11. OXYCODONE HYDROCHLORIDE. [Concomitant]
     Active Substance: OXYCODONE HYDROCHLORIDE
     Dosage: 2.5 MG, UNK
     Route: 048
     Dates: start: 20150511
  12. LOSARTAN POTASSIUM AND HYDROCHLOROTHIAZIDE [Concomitant]
     Active Substance: HYDROCHLOROTHIAZIDE\LOSARTAN POTASSIUM
     Dosage: 1 DF, DAILY (LOSARTAN POTASSIUM-100MG; HCTZ-25 MG)
     Route: 048
     Dates: start: 20160407
  13. NAPROXEN SODIUM. [Concomitant]
     Active Substance: NAPROXEN SODIUM
     Dosage: 220 MG, 2X/DAY
     Route: 048
     Dates: start: 20150518
  14. METFORMIN HCL [Concomitant]
     Active Substance: METFORMIN HYDROCHLORIDE
     Dosage: 1000 MG, 2X/DAY
     Route: 048
     Dates: start: 20150511

REACTIONS (11)
  - Neutropenia [Recovered/Resolved]
  - Vomiting [Unknown]
  - Diarrhoea [Unknown]
  - Upper respiratory tract infection [Unknown]
  - Anaemia [Recovering/Resolving]
  - White blood cell count decreased [Recovered/Resolved]
  - Nausea [Unknown]
  - Cytopenia [Recovered/Resolved]
  - Anxiety [Not Recovered/Not Resolved]
  - Musculoskeletal discomfort [Unknown]
  - Fatigue [Recovering/Resolving]
